FAERS Safety Report 11285785 (Version 2)
Quarter: 2015Q4

REPORT INFORMATION
  Report Type: Spontaneous
  Country: JP (occurrence: JP)
  Receive Date: 20150721
  Receipt Date: 20151007
  Transmission Date: 20160304
  Serious: Yes (Hospitalization)
  Sender: FDA-Public Use
  Company Number: JP-ROCHE-1608674

PATIENT
  Age: 61 Year
  Sex: Female

DRUGS (16)
  1. METHOTREXATE [Concomitant]
     Active Substance: METHOTREXATE
  2. URSODEOXYCHOLIC ACID [Concomitant]
     Active Substance: URSODIOL
     Route: 048
     Dates: start: 20120110, end: 20120423
  3. OMEPRAL [Concomitant]
     Active Substance: OMEPRAZOLE
     Route: 048
     Dates: start: 20120419, end: 20121105
  4. DEXAMETHASONE. [Concomitant]
     Active Substance: DEXAMETHASONE
  5. CYTARABINE. [Concomitant]
     Active Substance: CYTARABINE
  6. ITRIZOLE [Concomitant]
     Active Substance: ITRACONAZOLE
     Route: 048
     Dates: start: 20120517, end: 20121203
  7. RITUXAN [Suspect]
     Active Substance: RITUXIMAB
     Indication: ACUTE LYMPHOCYTIC LEUKAEMIA
     Route: 042
     Dates: end: 20120724
  8. CRAVIT [Concomitant]
     Active Substance: LEVOFLOXACIN
     Route: 048
     Dates: start: 20120517, end: 2012
  9. DOXORUBICIN [Concomitant]
     Active Substance: DOXORUBICIN
  10. ZOPICLONE [Concomitant]
     Active Substance: ZOPICLONE
     Route: 048
     Dates: start: 20120128, end: 20120423
  11. CYCLOPHOSPHAMIDE. [Concomitant]
     Active Substance: CYCLOPHOSPHAMIDE
  12. EXJADE [Concomitant]
     Active Substance: DEFERASIROX
     Route: 048
     Dates: start: 20120614, end: 20120724
  13. VINCRISTINE [Concomitant]
     Active Substance: VINCRISTINE
  14. PREDNISOLONE. [Concomitant]
     Active Substance: PREDNISOLONE
  15. BAKTAR [Concomitant]
     Active Substance: SULFAMETHOXAZOLE\TRIMETHOPRIM
     Dosage: 4 T
     Route: 048
     Dates: start: 20120712, end: 20120724
  16. DICLOFENAC SODIUM. [Concomitant]
     Active Substance: DICLOFENAC SODIUM
     Route: 065
     Dates: start: 20120616, end: 20120616

REACTIONS (4)
  - Still^s disease adult onset [Recovered/Resolved]
  - Pneumocystis jirovecii pneumonia [Unknown]
  - Pneumonia cytomegaloviral [Unknown]
  - Gastroenteritis norovirus [Unknown]

NARRATIVE: CASE EVENT DATE: 20120724
